FAERS Safety Report 20341205 (Version 5)
Quarter: 2022Q1

REPORT INFORMATION
  Report Type: Report from Study
  Country: US (occurrence: US)
  Receive Date: 20220117
  Receipt Date: 20220217
  Transmission Date: 20220424
  Serious: No
  Sender: FDA-Public Use
  Company Number: US-NOVARTISTESTPH-NVSC2022US007055

PATIENT
  Sex: Male

DRUGS (2)
  1. ENTRESTO [Suspect]
     Active Substance: SACUBITRIL\VALSARTAN
     Indication: Cardiac failure chronic
     Dosage: 1 DOSAGE FORM, BID (TAKES 3/4 TAB IN AM, 1/2 TAB IN PM)
     Route: 048
     Dates: start: 20220111
  2. ENTRESTO [Suspect]
     Active Substance: SACUBITRIL\VALSARTAN
     Dosage: 1 DOSAGE FORM, BID(97/103MG)
     Route: 048

REACTIONS (8)
  - Heart rate increased [Unknown]
  - Paraesthesia oral [Unknown]
  - Pain [Unknown]
  - Dyspnoea exertional [Unknown]
  - Dysstasia [Recovering/Resolving]
  - Cough [Unknown]
  - Inappropriate schedule of product administration [Recovering/Resolving]
  - Wrong technique in product usage process [Recovered/Resolved]
